FAERS Safety Report 17049429 (Version 1)
Quarter: 2019Q4

REPORT INFORMATION
  Report Type: Spontaneous
  Country: US (occurrence: US)
  Receive Date: 20191119
  Receipt Date: 20191119
  Transmission Date: 20200122
  Serious: Yes (Death)
  Sender: FDA-Public Use
  Company Number: None

PATIENT
  Age: 64 Year
  Sex: Female

DRUGS (6)
  1. GABAPENTIN. [Concomitant]
     Active Substance: GABAPENTIN
  2. HUMIRA [Suspect]
     Active Substance: ADALIMUMAB
     Indication: RHEUMATOID ARTHRITIS
     Dosage: ?          OTHER FREQUENCY:EVERY 2 WEEKS;??
     Route: 058
     Dates: start: 20190813
  3. BACLOFEN. [Concomitant]
     Active Substance: BACLOFEN
  4. MELOXICAM. [Concomitant]
     Active Substance: MELOXICAM
  5. FOLIC ACID. [Concomitant]
     Active Substance: FOLIC ACID
  6. VIT. D [Concomitant]

REACTIONS (1)
  - Death [None]
